FAERS Safety Report 6550605-7 (Version None)
Quarter: 2010Q1

REPORT INFORMATION
  Report Type: 
  Country: None (occurrence: None)
  Receive Date: 20100125
  Receipt Date: 20090202
  Transmission Date: 20100710
  Serious: No
  Sender: FDA-Public Use
  Company Number: US-TYCO HEALTHCARE/MALLINCKRODT-T200900177

PATIENT
  Age: 44 Year
  Sex: Female

DRUGS (1)
  1. OPTIRAY 350 [Suspect]
     Indication: CHEST PAIN
     Dosage: 120 ML, SINGLE
     Route: 042
     Dates: start: 20090129, end: 20090129

REACTIONS (5)
  - COUGH [None]
  - DIZZINESS [None]
  - FACIAL PAIN [None]
  - NAUSEA [None]
  - VOMITING [None]
